FAERS Safety Report 19916553 (Version 2)
Quarter: 2021Q4

REPORT INFORMATION
  Report Type: Report from Study
  Country: US (occurrence: None)
  Receive Date: 20211005
  Receipt Date: 20211122
  Transmission Date: 20220303
  Serious: Yes (Death, Hospitalization, Other)
  Sender: FDA-Public Use
  Company Number: US-ROCHE-2923741

PATIENT
  Age: 65 Year
  Sex: Male
  Weight: 79.1 kg

DRUGS (3)
  1. VENETOCLAX [Suspect]
     Active Substance: VENETOCLAX
     Indication: Chronic lymphocytic leukaemia
     Dosage: ON 26/APR/2021, HE RECEIVED THE MOST RECENT DOSE OF VENETOCLAX PRIOR TO SAE.?50 MG PO QD DAYS 8-14,
     Route: 048
     Dates: start: 20200522
  2. OBINUTUZUMAB [Suspect]
     Active Substance: OBINUTUZUMAB
     Indication: Chronic lymphocytic leukaemia
     Dosage: ON 18/AUG/2020, HE RECEIVED THE MOST RECENT DOSE OF OBINUTUZUMAB PRIOR TO SAE.?900 MG IV ON DAY 2, C
     Route: 042
     Dates: start: 20200327
  3. IBRUTINIB [Suspect]
     Active Substance: IBRUTINIB
     Indication: Chronic lymphocytic leukaemia
     Dosage: ON 04/SEP/2021, HE RECEIVED THE MOST RECENT DOSE OF IBRUTINIB PRIOR TO SAE.?DAYS 1-28, CYCLES 1-19
     Route: 048
     Dates: start: 20200327, end: 20210913

REACTIONS (3)
  - COVID-19 [Not Recovered/Not Resolved]
  - Atrial fibrillation [Not Recovered/Not Resolved]
  - Sepsis [Fatal]

NARRATIVE: CASE EVENT DATE: 20200619
